FAERS Safety Report 4387271-5 (Version None)
Quarter: 2004Q2

REPORT INFORMATION
  Report Type: 
  Country: None (occurrence: None)
  Receive Date: 20040630
  Receipt Date: 20040402
  Transmission Date: 20050107
  Serious: No
  Sender: FDA-Public Use
  Company Number: US-GLAXOSMITHKLINE-A0505656A

PATIENT
  Age: 61 Year
  Sex: Male

DRUGS (8)
  1. ADVAIR HFA [Suspect]
     Dosage: 1PUFF TWICE PER DAY
     Route: 055
     Dates: start: 20031224, end: 20031229
  2. COMBIVENT [Concomitant]
  3. ATENOLOL [Concomitant]
  4. LIPITOR [Concomitant]
  5. IMDUR [Concomitant]
  6. ZETIA [Concomitant]
  7. CELEXA [Concomitant]
  8. DIAZEPAM [Concomitant]

REACTIONS (2)
  - COUGH [None]
  - ILL-DEFINED DISORDER [None]
